FAERS Safety Report 6976796-1 (Version None)
Quarter: 2010Q3

REPORT INFORMATION
  Report Type: 
  Country: None (occurrence: None)
  Receive Date: 20100910
  Receipt Date: 20100901
  Transmission Date: 20110219
  Serious: Yes (Hospitalization)
  Sender: FDA-Public Use
  Company Number: A0725146A

PATIENT
  Age: 40 Year
  Sex: Female
  Weight: 181.8 kg

DRUGS (4)
  1. AVANDIA [Suspect]
     Dosage: 4MG TWICE PER DAY
     Route: 048
     Dates: start: 20041001, end: 20060610
  2. METFORMIN [Concomitant]
     Dates: start: 20040601, end: 20080801
  3. HUMALOG [Concomitant]
     Dates: start: 20070801
  4. LANTUS [Concomitant]
     Dates: start: 20070801

REACTIONS (2)
  - CARDIAC FAILURE CONGESTIVE [None]
  - HEART INJURY [None]
